FAERS Safety Report 4302751-6 (Version None)
Quarter: 2004Q1

REPORT INFORMATION
  Report Type: 
  Country: None (occurrence: None)
  Receive Date: 20040224
  Receipt Date: 20030131
  Transmission Date: 20041129
  Serious: Yes (Other)
  Sender: FDA-Public Use
  Company Number: US-BRISTOL-MYERS SQUIBB COMPANY-12173902

PATIENT
  Age: 49 Year
  Sex: Female
  Weight: 52 kg

DRUGS (4)
  1. KENALOG [Suspect]
     Dosage: ROUTE: ^INJECTION IN NECK AREA^
     Dates: start: 20030128, end: 20030128
  2. EFFEXOR [Concomitant]
     Dates: end: 20030131
  3. ELAVIL [Concomitant]
  4. NEURONTIN [Concomitant]

REACTIONS (1)
  - MYOCLONUS [None]
